FAERS Safety Report 8482705-9 (Version None)
Quarter: 2012Q3

REPORT INFORMATION
  Report Type: 
  Country: None (occurrence: None)
  Receive Date: 20120702
  Receipt Date: 20120626
  Transmission Date: 20120928
  Serious: Yes (Hospitalization, Other)
  Sender: FDA-Public Use
  Company Number: US-MERCK-1202USA01129

PATIENT
  Age: 56 Year
  Sex: Female
  Weight: 64 kg

DRUGS (6)
  1. FOSAMAX [Suspect]
     Indication: OSTEOPOROSIS
     Route: 048
     Dates: start: 20000101
  2. FOSAMAX [Suspect]
     Indication: OSTEOPENIA
     Route: 048
     Dates: start: 20000101
  3. ACTONEL [Suspect]
     Indication: OSTEOPENIA
     Route: 048
     Dates: start: 20070301
  4. ACTONEL [Suspect]
     Indication: OSTEOPOROSIS
     Route: 048
     Dates: start: 20070301
  5. FOSAMAX [Suspect]
     Route: 048
     Dates: start: 20000101
  6. FOSAMAX [Suspect]
     Route: 048
     Dates: start: 20000101

REACTIONS (57)
  - APPENDIX DISORDER [None]
  - HYPERCHOLESTEROLAEMIA [None]
  - PRURITUS [None]
  - INTERVERTEBRAL DISC DISORDER [None]
  - NEPHROLITHIASIS [None]
  - CHEST PAIN [None]
  - OSTEOARTHRITIS [None]
  - OEDEMA PERIPHERAL [None]
  - SUBCLAVIAN ARTERY STENOSIS [None]
  - UTERINE HAEMORRHAGE [None]
  - BLOOD UREA INCREASED [None]
  - HEPATIC CYST [None]
  - SUBCLAVIAN STEAL SYNDROME [None]
  - SPINAL OSTEOARTHRITIS [None]
  - SINUS TACHYCARDIA [None]
  - CHRONIC OBSTRUCTIVE PULMONARY DISEASE [None]
  - CERUMEN IMPACTION [None]
  - BLOOD CREATININE INCREASED [None]
  - DEPRESSION [None]
  - FEMUR FRACTURE [None]
  - FALL [None]
  - FATIGUE [None]
  - EPIDURAL FIBROSIS [None]
  - COUGH [None]
  - DRUG HYPERSENSITIVITY [None]
  - HYPOAESTHESIA [None]
  - STAPHYLOCOCCAL INFECTION [None]
  - CONSTIPATION [None]
  - THROMBOANGIITIS OBLITERANS [None]
  - PYREXIA [None]
  - ELECTROCARDIOGRAM T WAVE ABNORMAL [None]
  - HYPERLIPIDAEMIA [None]
  - SLEEP APNOEA SYNDROME [None]
  - MUSCLE STRAIN [None]
  - ARTHRALGIA [None]
  - GASTROOESOPHAGEAL REFLUX DISEASE [None]
  - DIZZINESS [None]
  - PARAESTHESIA [None]
  - PALPITATIONS [None]
  - PAIN [None]
  - URINARY HESITATION [None]
  - TOBACCO ABUSE [None]
  - LOW TURNOVER OSTEOPATHY [None]
  - INSOMNIA [None]
  - BALANCE DISORDER [None]
  - BACK DISORDER [None]
  - SPINAL DISORDER [None]
  - ABDOMINAL PAIN UPPER [None]
  - BACK PAIN [None]
  - POLYP COLORECTAL [None]
  - PNEUMONIA [None]
  - URINARY TRACT INFECTION [None]
  - BLOOD THYROID STIMULATING HORMONE [None]
  - ROTATOR CUFF SYNDROME [None]
  - RENAL CYST [None]
  - CAROTID BRUIT [None]
  - ADVERSE DRUG REACTION [None]
